FAERS Safety Report 12612354 (Version 2)
Quarter: 2016Q3

REPORT INFORMATION
  Report Type: Spontaneous
  Country: JP (occurrence: JP)
  Receive Date: 20160801
  Receipt Date: 20160812
  Transmission Date: 20161109
  Serious: Yes (Hospitalization)
  Sender: FDA-Public Use
  Company Number: JP-ABBVIE-16P-087-1686036-00

PATIENT
  Age: 15 Year
  Sex: Male

DRUGS (3)
  1. LUVOX [Suspect]
     Active Substance: FLUVOXAMINE MALEATE
     Indication: ATTENTION DEFICIT/HYPERACTIVITY DISORDER
     Route: 048
  2. CLARITHROMYCIN. [Suspect]
     Active Substance: CLARITHROMYCIN
     Indication: NASOPHARYNGITIS
     Route: 048
     Dates: start: 20160714
  3. PL [Suspect]
     Active Substance: ACETAMINOPHEN\CAFFEINE\PROMETHAZINE\SALICYLAMIDE
     Indication: NASOPHARYNGITIS
     Route: 048
     Dates: start: 20160714

REACTIONS (5)
  - Nasopharyngitis [Unknown]
  - Decreased appetite [Unknown]
  - Hypoglycaemia [Recovering/Resolving]
  - Electrocardiogram QT prolonged [Unknown]
  - Febrile convulsion [Recovering/Resolving]

NARRATIVE: CASE EVENT DATE: 201607
